FAERS Safety Report 5300716-9 (Version None)
Quarter: 2007Q2

REPORT INFORMATION
  Report Type: 
  Country: None (occurrence: None)
  Receive Date: 20070418
  Receipt Date: 20070412
  Transmission Date: 20071010
  Serious: Yes (Hospitalization)
  Sender: FDA-Public Use
  Company Number: HQWYE510102MAR07

PATIENT
  Sex: Female
  Weight: 55.39 kg

DRUGS (14)
  1. RAPAMUNE [Suspect]
     Indication: PROPHYLAXIS AGAINST TRANSPLANT REJECTION
     Route: 048
     Dates: start: 20040812
  2. ZENAPAX [Suspect]
     Indication: PROPHYLAXIS AGAINST TRANSPLANT REJECTION
     Dosage: DOSE UNKNOWN
     Route: 048
  3. PREDNISONE TAB [Suspect]
     Indication: PROPHYLAXIS AGAINST TRANSPLANT REJECTION
     Route: 048
  4. ECOTRIN [Concomitant]
     Route: 065
  5. GANCICLOVIR [Concomitant]
     Dosage: 1000 (UNITS UNKNOWN), TWICE DAILY
     Route: 065
  6. FERROUS SULFATE [Concomitant]
     Dosage: 325 (UNITS NOT PROVIDED), THREE TIMES DAILY
     Route: 065
  7. BACTRIM [Concomitant]
     Dosage: DOSE UNKNOWN, M-W-F
     Route: 065
  8. PEPCID [Concomitant]
     Dosage: 20 MG, FREQUENCY UNSPECIFIED
     Route: 065
  9. SYNTHROID [Concomitant]
     Dosage: '2.5 MCG' DAILY
     Route: 065
  10. TOPROL-XL [Concomitant]
     Route: 065
  11. ADALAT [Concomitant]
     Route: 065
  12. ZESTRIL [Concomitant]
     Route: 065
  13. TACROLIMUS [Suspect]
     Indication: PROPHYLAXIS AGAINST TRANSPLANT REJECTION
     Dosage: 4/4
     Route: 048
  14. ZOCOR [Concomitant]
     Route: 065

REACTIONS (3)
  - ANAEMIA [None]
  - CONDITION AGGRAVATED [None]
  - HYPERTENSION [None]
